FAERS Safety Report 5449489-X (Version None)
Quarter: 2007Q3

REPORT INFORMATION
  Report Type: 
  Country: None (occurrence: None)
  Receive Date: 20070907
  Receipt Date: 20070824
  Transmission Date: 20080115
  Serious: Yes (Other)
  Sender: FDA-Public Use
  Company Number: GB-1163987

PATIENT
  Age: 11 Month
  Sex: Male

DRUGS (1)
  1. CHLORAMPHENICOL [Suspect]
     Indication: CONJUNCTIVITIS
     Dosage: 2 DF 8/1DAYS
     Route: 047
     Dates: start: 20070720, end: 20070722

REACTIONS (1)
  - ANAPHYLACTIC REACTION [None]
